FAERS Safety Report 24531418 (Version 1)
Quarter: 2024Q4

REPORT INFORMATION
  Report Type: Report from Study
  Country: US (occurrence: US)
  Receive Date: 20241022
  Receipt Date: 20241022
  Transmission Date: 20250115
  Serious: No
  Sender: ROCHE
  Company Number: US-ROCHE-3493621

PATIENT
  Age: 64 Year
  Sex: Male

DRUGS (13)
  1. PULMOZYME [Suspect]
     Active Substance: DORNASE ALFA
     Indication: Cystic fibrosis lung
     Route: 055
  2. ASPIRIN [Concomitant]
     Active Substance: ASPIRIN
  3. LISINOPRIL [Concomitant]
     Active Substance: LISINOPRIL
  4. OMEGA-3 FATTY ACIDS [Concomitant]
     Active Substance: OMEGA-3 FATTY ACIDS
  5. SIMVASTATIN [Concomitant]
     Active Substance: SIMVASTATIN
  6. CARDIOLOL [Concomitant]
  7. TORSEMIDE [Concomitant]
     Active Substance: TORSEMIDE
  8. NAPROXEN [Concomitant]
     Active Substance: NAPROXEN
  9. EZETIMIBE [Concomitant]
     Active Substance: EZETIMIBE
  10. ALBUTEROL SULFATE [Concomitant]
     Active Substance: ALBUTEROL SULFATE
  11. AZELASTINE [Concomitant]
     Active Substance: AZELASTINE
  12. TADALAFIL [Concomitant]
     Active Substance: TADALAFIL
  13. TAMSULOSIN [Concomitant]
     Active Substance: TAMSULOSIN

REACTIONS (14)
  - General physical health deterioration [Unknown]
  - Feeling abnormal [Unknown]
  - Sinusitis [Unknown]
  - Dyspnoea exertional [Unknown]
  - Wheezing [Unknown]
  - Ingrowing nail [Unknown]
  - Pain [Unknown]
  - Onychomycosis [Unknown]
  - Cardiac failure congestive [Unknown]
  - Bronchitis [Unknown]
  - Dyspnoea [Unknown]
  - Bronchiectasis [Unknown]
  - Positive airway pressure therapy [Unknown]
  - Productive cough [Unknown]
